FAERS Safety Report 12954968 (Version 10)
Quarter: 2017Q2

REPORT INFORMATION
  Report Type: Spontaneous
  Country: US (occurrence: US)
  Receive Date: 20161118
  Receipt Date: 20170616
  Transmission Date: 20170830
  Serious: Yes (Death, Congenital Anomaly, Other)
  Sender: FDA-Public Use
  Company Number: PHEH2016US030209

PATIENT
  Sex: Female

DRUGS (1)
  1. ZOFRAN [Suspect]
     Active Substance: ONDANSETRON HYDROCHLORIDE
     Indication: FOETAL EXPOSURE DURING PREGNANCY
     Route: 064

REACTIONS (23)
  - Patent ductus arteriosus [Unknown]
  - Thrombocytopenia neonatal [Unknown]
  - Developmental delay [Unknown]
  - Cardiomegaly [Unknown]
  - Gastrooesophageal reflux disease [Unknown]
  - Pulmonary hypertension [Unknown]
  - Pyrexia [Unknown]
  - Failure to thrive [Unknown]
  - Dyspnoea [Unknown]
  - Heart disease congenital [Fatal]
  - Right ventricular enlargement [Unknown]
  - Intellectual disability [Unknown]
  - Pneumonitis [Unknown]
  - Cerebral palsy [Unknown]
  - Foetal exposure during pregnancy [Unknown]
  - Right ventricular hypertrophy [Unknown]
  - Cephalhaematoma [Unknown]
  - Hypoventilation neonatal [Unknown]
  - Nystagmus [Unknown]
  - Injury [Unknown]
  - Pulmonary valve stenosis [Unknown]
  - Cardiac murmur [Unknown]
  - Constipation [Unknown]
